FAERS Safety Report 5603076-9 (Version None)
Quarter: 2008Q1

REPORT INFORMATION
  Report Type: 
  Country: None (occurrence: None)
  Receive Date: 20080125
  Receipt Date: 20080115
  Transmission Date: 20080703
  Serious: Yes (Hospitalization, Other)
  Sender: FDA-Public Use
  Company Number: US-PFIZER INC-2007086469

PATIENT
  Sex: Female
  Weight: 64 kg

DRUGS (4)
  1. CHANTIX [Suspect]
     Indication: SMOKING CESSATION THERAPY
     Dates: start: 20071004, end: 20071011
  2. CARAFATE [Concomitant]
  3. AMBIEN [Concomitant]
  4. ZOLOFT [Concomitant]

REACTIONS (3)
  - ACUTE PSYCHOSIS [None]
  - EMOTIONAL DISTRESS [None]
  - SUICIDE ATTEMPT [None]
